FAERS Safety Report 9253988 (Version 1)
Quarter: 2013Q1

REPORT INFORMATION
  Report Type: Spontaneous
  Country: US (occurrence: None)
  Receive Date: 20121211
  Receipt Date: 20121211
  Transmission Date: 20140127
  Serious: Yes (Other)
  Sender: FDA-Public Use
  Company Number: 1209USA003715

PATIENT
  Sex: Male

DRUGS (7)
  1. ISENTRESS [Suspect]
     Route: 048
  2. NORVIR [Suspect]
     Route: 048
  3. ETRAVIRINE [Suspect]
     Route: 048
  4. TRIZIVIR [Suspect]
  5. CRESTOR [Suspect]
     Route: 048
  6. BACTRIM [Concomitant]
  7. CELIPROLOL HYDROCHLORIDE (CELIPROLOL HYDROCHLORIDE) [Concomitant]

REACTIONS (1)
  - Blood creatine phosphokinase increased [None]
